FAERS Safety Report 8882611 (Version 3)
Quarter: 2012Q4

REPORT INFORMATION
  Report Type: 
  Country: JP (occurrence: JP)
  Receive Date: 20121105
  Receipt Date: 20121226
  Transmission Date: 20130627
  Serious: Yes (Hospitalization)
  Sender: FDA-Public Use
  Company Number: JP-009507513-1210JPN013110

PATIENT
  Age: 47 Year
  Sex: Female
  Weight: 50 kg

DRUGS (16)
  1. GASTER [Suspect]
     Indication: ACOUSTIC NEUROMA
     Dosage: 20 mg, bid
     Route: 048
     Dates: start: 20120813, end: 20120825
  2. GASTER [Suspect]
     Indication: POSTOPERATIVE CARE
  3. CELECOX [Suspect]
     Indication: INFLAMMATION
     Dosage: 100 mg, bid
     Route: 048
     Dates: start: 20120813, end: 20120825
  4. CELECOX [Suspect]
     Indication: ACOUSTIC NEUROMA
  5. CELECOX [Suspect]
     Indication: POSTOPERATIVE CARE
  6. ANTEBATE [Concomitant]
  7. MERISLON [Concomitant]
     Indication: POSTOPERATIVE CARE
     Dosage: UNK
     Dates: start: 20120813, end: 20120825
  8. MERISLON [Concomitant]
     Indication: ACOUSTIC NEUROMA
  9. METHYCOBAL [Concomitant]
     Indication: POSTOPERATIVE CARE
     Dosage: UNK
     Route: 048
     Dates: start: 20120813, end: 20120825
  10. METHYCOBAL [Concomitant]
     Indication: ACOUSTIC NEUROMA
  11. PREDONINE [Concomitant]
     Indication: POSTOPERATIVE CARE
     Dosage: UNK
     Dates: end: 20120825
  12. PREDONINE [Concomitant]
     Indication: ACOUSTIC NEUROMA
  13. ULTIVA [Concomitant]
     Indication: ANAESTHESIA PROCEDURE
     Dosage: UNK
     Dates: start: 20120808
  14. PROPOFOL [Concomitant]
     Indication: ANAESTHESIA PROCEDURE
     Dosage: UNK
     Dates: start: 20120808
  15. PREDNISOLONE SODIUM SUCCINATE [Concomitant]
     Indication: ACOUSTIC NEUROMA
     Dosage: UNK
     Dates: start: 20120808
  16. PREDNISOLONE SODIUM SUCCINATE [Concomitant]
     Indication: POSTOPERATIVE CARE

REACTIONS (2)
  - Drug eruption [Recovering/Resolving]
  - Intentional drug misuse [Unknown]
